FAERS Safety Report 6907201-9 (Version None)
Quarter: 2010Q3

REPORT INFORMATION
  Report Type: 
  Country: None (occurrence: None)
  Receive Date: 20100804
  Receipt Date: 20100730
  Transmission Date: 20110219
  Serious: Yes (Death, Congenital Anomaly, Other)
  Sender: FDA-Public Use
  Company Number: GB-MERCK-0907GBR00027B1

PATIENT
  Age: 16 Day
  Sex: Female
  Weight: 3 kg

DRUGS (5)
  1. ISENTRESS [Suspect]
     Route: 064
     Dates: start: 20090319
  2. DARUNAVIR [Suspect]
     Route: 064
     Dates: start: 20090310
  3. ZIDOVUDINE [Suspect]
     Route: 064
  4. RITONAVIR [Suspect]
     Route: 064
     Dates: start: 20090310
  5. EMTRICITABINE AND TENOFOVIR DISOPROXIL FUMARATE [Suspect]
     Route: 064

REACTIONS (15)
  - AORTIC VALVE DISEASE [None]
  - AORTIC VALVE SCLEROSIS [None]
  - APNOEA [None]
  - CARDIAC ARREST [None]
  - CARDIAC MURMUR [None]
  - CONGENITAL ANOMALY [None]
  - CONGENITAL HEART VALVE DISORDER [None]
  - CONGENITAL PULMONARY VALVE DISORDER [None]
  - DRUG EXPOSURE DURING PREGNANCY [None]
  - LARGE FOR DATES BABY [None]
  - MATERNAL DRUGS AFFECTING FOETUS [None]
  - NEONATAL RESPIRATORY ARREST [None]
  - PULMONARY VALVE SCLEROSIS [None]
  - SUDDEN INFANT DEATH SYNDROME [None]
  - VENTRICULAR HYPERTROPHY [None]
